FAERS Safety Report 12400325 (Version 1)
Quarter: 2016Q2

REPORT INFORMATION
  Report Type: Spontaneous
  Country: US (occurrence: None)
  Receive Date: 20160524
  Receipt Date: 20160524
  Transmission Date: 20160815
  Serious: Yes (Other)
  Sender: FDA-Public Use
  Company Number: None

PATIENT
  Age: 42 Year
  Sex: Male
  Weight: 73.48 kg

DRUGS (13)
  1. SUSTIVA [Suspect]
     Active Substance: EFAVIRENZ
     Indication: HIV INFECTION
     Route: 048
  2. MULTIVITAMIN [Concomitant]
     Active Substance: VITAMINS
  3. ZANAFLEX [Concomitant]
     Active Substance: TIZANIDINE HYDROCHLORIDE
  4. TUMERIC [Concomitant]
     Active Substance: TURMERIC
  5. VITAMIN C [Concomitant]
     Active Substance: ASCORBIC ACID
  6. LORAZEPAM. [Concomitant]
     Active Substance: LORAZEPAM
  7. TRIUMEQ [Concomitant]
     Active Substance: ABACAVIR SULFATE\DOLUTEGRAVIR SODIUM\LAMIVUDINE
  8. OXYCODONE [Concomitant]
     Active Substance: OXYCODONE
  9. DIAZEPAM. [Concomitant]
     Active Substance: DIAZEPAM
  10. CLARITIN [Concomitant]
     Active Substance: LORATADINE
  11. REQUIP [Concomitant]
     Active Substance: ROPINIROLE HYDROCHLORIDE
  12. MIRTZAPINE [Concomitant]
  13. L-LYSINE [Concomitant]
     Active Substance: LYSINE

REACTIONS (8)
  - Internal haemorrhage [None]
  - Decreased appetite [None]
  - Rectal haemorrhage [None]
  - Anxiety [None]
  - Fatigue [None]
  - Condition aggravated [None]
  - Abdominal distension [None]
  - Depression [None]

NARRATIVE: CASE EVENT DATE: 20080501
